FAERS Safety Report 5161992-9 (Version None)
Quarter: 2006Q4

REPORT INFORMATION
  Report Type: 
  Country: None (occurrence: None)
  Receive Date: 20061130
  Receipt Date: 20051013
  Transmission Date: 20070319
  Serious: Yes (Death, Hospitalization)
  Sender: FDA-Public Use
  Company Number: JP-SANOFI-SYNTHELABO-F01200502128

PATIENT
  Sex: Male
  Weight: 51 kg

DRUGS (5)
  1. FLUOROURACIL [Suspect]
     Dosage: 500MG/BODY =333.3MG/M2 IN BOLUS THEN 750MG/BODY=500MG/M2 AS CONTINUOUS INFUSION ON D1+2
     Route: 042
     Dates: start: 20050623, end: 20050624
  2. VANCOMYCIN [Concomitant]
     Route: 041
     Dates: start: 20050705, end: 20050706
  3. OXALIPLATIN [Suspect]
     Indication: RECTAL CANCER
     Dosage: 100MG/BODY=66.7MG/M2 IN INFUSION ON DAY 1
     Route: 042
     Dates: start: 20050623, end: 20050623
  4. FOY [Concomitant]
     Route: 041
     Dates: start: 20050708, end: 20050711
  5. LEUCOVORIN CALCIUM [Suspect]
     Dosage: 125MG/BODY=83.3MG/M2 AS INFUSION ON DAYS 1 AND 2
     Route: 042
     Dates: start: 20050623, end: 20050624

REACTIONS (6)
  - DISEASE PROGRESSION [None]
  - HAEMOGLOBIN DECREASED [None]
  - LEUKOPENIA [None]
  - PELVIC INFECTION [None]
  - RESPIRATORY FAILURE [None]
  - THROMBOCYTOPENIA [None]
